FAERS Safety Report 6377160-9 (Version None)
Quarter: 2009Q3

REPORT INFORMATION
  Report Type: 
  Country: None (occurrence: None)
  Receive Date: 20090925
  Receipt Date: 20090915
  Transmission Date: 20100115
  Serious: Yes (Hospitalization)
  Sender: FDA-Public Use
  Company Number: US-ELI_LILLY_AND_COMPANY-US200909003406

PATIENT
  Age: 64 Year
  Sex: Female

DRUGS (1)
  1. GEMZAR [Suspect]
     Indication: PANCREATIC CARCINOMA
     Dosage: 1500 MG, OTHER
     Route: 042
     Dates: start: 20090828

REACTIONS (1)
  - HOSPITALISATION [None]
